FAERS Safety Report 7243255-0 (Version None)
Quarter: 2011Q1

REPORT INFORMATION
  Report Type: 
  Country: None (occurrence: None)
  Receive Date: 20110125
  Receipt Date: 20110113
  Transmission Date: 20110831
  Serious: Yes (Other)
  Sender: FDA-Public Use
  Company Number: IT-ROCHE-753188

PATIENT
  Age: 7 Year
  Sex: Female
  Weight: 29 kg

DRUGS (1)
  1. OSELTAMIVIR [Suspect]
     Indication: H1N1 INFLUENZA
     Route: 065

REACTIONS (2)
  - ENCEPHALITIS VIRAL [None]
  - DRUG INEFFECTIVE [None]
